FAERS Safety Report 24533271 (Version 1)
Quarter: 2024Q4

REPORT INFORMATION
  Report Type: Spontaneous
  Country: US (occurrence: US)
  Receive Date: 20241022
  Receipt Date: 20241022
  Transmission Date: 20250114
  Serious: Yes (Other)
  Sender: KEDRION
  Company Number: US-KEDRION-009706

PATIENT
  Age: 54 Year
  Sex: Male

DRUGS (1)
  1. HUMAN IMMUNOGLOBULIN G [Suspect]
     Active Substance: HUMAN IMMUNOGLOBULIN G
     Indication: Dyspnoea
     Dosage: SINGLE ROUND
     Route: 042

REACTIONS (3)
  - Myasthenia gravis [Unknown]
  - Off label use [Unknown]
  - Antiacetylcholine receptor antibody positive [Unknown]
